FAERS Safety Report 23389837 (Version 1)
Quarter: 2024Q1

REPORT INFORMATION
  Report Type: Other
  Country: FR (occurrence: FR)
  Receive Date: 20240111
  Receipt Date: 20240111
  Transmission Date: 20240409
  Serious: Yes (Other)
  Sender: FDA-Public Use
  Company Number: None

PATIENT

DRUGS (5)
  1. PEGASPARGASE [Suspect]
     Active Substance: PEGASPARGASE
     Indication: Acute biphenotypic leukaemia
     Dosage: 4 CONSOLIDATION COURSES, CUMULATIVE DOSE: 4 000 IU/M2
     Route: 065
  2. METHOTREXATE [Suspect]
     Active Substance: METHOTREXATE
     Indication: Acute biphenotypic leukaemia
     Dosage: 16 G/M2, 4 CONSOLIDATION COURSES
     Route: 065
  3. DARATUMUMAB [Concomitant]
     Active Substance: DARATUMUMAB
     Indication: Acute biphenotypic leukaemia
     Dosage: WEEKLY
     Route: 058
  4. MERCAPTOPURINE [Concomitant]
     Active Substance: MERCAPTOPURINE
     Indication: Acute biphenotypic leukaemia
     Dosage: UNK
     Route: 065
  5. VINCRISTINE [Concomitant]
     Active Substance: VINCRISTINE
     Indication: Acute biphenotypic leukaemia
     Dosage: 4 CONSOLIDATION COURSES
     Route: 065

REACTIONS (4)
  - Drug-induced liver injury [Unknown]
  - Hepatic cytolysis [Unknown]
  - Cholestasis [Unknown]
  - Hepatic steatosis [Unknown]
